FAERS Safety Report 18433663 (Version 1)
Quarter: 2020Q4

REPORT INFORMATION
  Report Type: Spontaneous
  Country: US (occurrence: US)
  Receive Date: 20201027
  Receipt Date: 20201027
  Transmission Date: 20210114
  Serious: No
  Sender: FDA-Public Use
  Company Number: US-B.BRAUN MEDICAL INC.-2093185

PATIENT
  Age: 32 Year
  Sex: Female

DRUGS (2)
  1. BUPIVACAINE HYDROCHLORIDE WITH DEXTROSE [Suspect]
     Active Substance: BUPIVACAINE HYDROCHLORIDE
     Indication: CAESAREAN SECTION
     Route: 037
  2. C-SECTION [Concomitant]

REACTIONS (1)
  - Anaesthetic complication [None]

NARRATIVE: CASE EVENT DATE: 20201002
